FAERS Safety Report 16029771 (Version 1)
Quarter: 2019Q1

REPORT INFORMATION
  Report Type: Spontaneous
  Country: US (occurrence: US)
  Receive Date: 20190304
  Receipt Date: 20190304
  Transmission Date: 20190418
  Serious: No
  Sender: FDA-Public Use
  Company Number: PHEH2019US009542

PATIENT
  Sex: Female

DRUGS (1)
  1. TASIGNA [Suspect]
     Active Substance: NILOTINIB
     Indication: CHRONIC MYELOID LEUKAEMIA
     Dosage: 300 MG, BID
     Route: 048
     Dates: start: 20120305, end: 20120607

REACTIONS (7)
  - Cerebrovascular disorder [Unknown]
  - Myalgia [Unknown]
  - Nausea [Unknown]
  - Hypoaesthesia [Unknown]
  - Decreased appetite [Unknown]
  - Fatigue [Unknown]
  - Migraine [Unknown]
